FAERS Safety Report 9107354 (Version 7)
Quarter: 2014Q1

REPORT INFORMATION
  Report Type: Spontaneous
  Country: US (occurrence: US)
  Receive Date: 20130221
  Receipt Date: 20140203
  Transmission Date: 20141002
  Serious: Yes (Hospitalization, Disabling, Other)
  Sender: FDA-Public Use
  Company Number: US-009507513-1302USA009097

PATIENT
  Sex: Female
  Weight: 63.49 kg

DRUGS (14)
  1. FOSAMAX [Suspect]
     Indication: OSTEOPOROSIS
     Dosage: 10 MG, QD
     Route: 048
     Dates: start: 200101
  2. FOSAMAX [Suspect]
     Dosage: 70 MG, QW
     Route: 048
     Dates: start: 200110, end: 200403
  3. FOSAMAX [Suspect]
     Dosage: 35 MG, QW
     Route: 048
     Dates: start: 20040309, end: 200501
  4. FOSAMAX [Suspect]
     Dosage: 70 MG, QW
     Route: 048
     Dates: start: 200501, end: 200806
  5. ALENDRONATE SODIUM [Suspect]
     Indication: OSTEOPOROSIS
     Dosage: 70 MG, QW
     Route: 048
     Dates: start: 20080625, end: 201008
  6. CITRACAL [Concomitant]
     Dosage: 630 MG, BID-TID
     Dates: start: 1995
  7. VITAMINS (UNSPECIFIED) [Concomitant]
     Dosage: UNK, QD
     Dates: start: 1995
  8. CHOLECALCIFEROL [Concomitant]
     Dosage: 1000 IU, QD
     Dates: start: 1995
  9. CORTICOSTEROIDS (UNSPECIFIED) [Concomitant]
     Dosage: UNK
     Dates: start: 1990
  10. HORMONES (UNSPECIFIED) [Concomitant]
     Dosage: UNK
     Dates: start: 1990, end: 2002
  11. METHOTREXATE [Concomitant]
     Indication: RHEUMATOID ARTHRITIS
     Dosage: 2.5 MG, 8 QW
     Route: 048
     Dates: start: 2001
  12. CELEBREX [Concomitant]
     Indication: RHEUMATOID ARTHRITIS
     Dosage: 200 MG, BID
     Route: 048
     Dates: start: 2001
  13. LYRICA [Concomitant]
     Indication: RHEUMATOID ARTHRITIS
     Dosage: UNK
     Dates: start: 2008
  14. PLAQUENIL [Concomitant]
     Indication: SYSTEMIC LUPUS ERYTHEMATOSUS
     Dosage: 200 MG, BID
     Route: 048
     Dates: start: 2000

REACTIONS (20)
  - Femur fracture [Not Recovered/Not Resolved]
  - Intramedullary rod insertion [Unknown]
  - Intramedullary rod insertion [Unknown]
  - Bone graft [Unknown]
  - Breast cancer [Unknown]
  - Fracture delayed union [Unknown]
  - Device breakage [Unknown]
  - Depression [Unknown]
  - Anxiety [Unknown]
  - Depression [Unknown]
  - Hand fracture [Unknown]
  - Radiotherapy [Unknown]
  - Adverse event [Unknown]
  - Fluid retention [Unknown]
  - Ulcer [Unknown]
  - Cystitis [Unknown]
  - Pain [Unknown]
  - Bursitis [Recovered/Resolved]
  - Medical device removal [Unknown]
  - Foot fracture [Unknown]
